FAERS Safety Report 9876959 (Version 2)
Quarter: 2014Q1

REPORT INFORMATION
  Report Type: Other
  Country: US (occurrence: US)
  Receive Date: 20140206
  Receipt Date: 20140206
  Transmission Date: 20141002
  Serious: No
  Sender: FDA-Public Use
  Company Number: US-ACORDA-ACO_35852_2013

PATIENT
  Age: 55 Year
  Sex: Male
  Weight: 72.56 kg

DRUGS (7)
  1. AMPYRA [Suspect]
     Indication: GAIT DISTURBANCE
     Dosage: 10 MG, BID
     Route: 048
     Dates: end: 201304
  2. AMPYRA [Suspect]
     Dosage: UNK
     Route: 065
     Dates: start: 20130529
  3. AMPYRA [Suspect]
     Dosage: 10 MG, QD
  4. GABAPENTIN [Concomitant]
     Indication: PRODUCT USED FOR UNKNOWN INDICATION
     Dosage: UNK
  5. OXCARBAZEPINE [Concomitant]
     Indication: PRODUCT USED FOR UNKNOWN INDICATION
     Dosage: UNK
  6. BACLOFEN [Concomitant]
     Indication: PRODUCT USED FOR UNKNOWN INDICATION
     Dosage: UNK
  7. VITAMIN D [Concomitant]
     Indication: PRODUCT USED FOR UNKNOWN INDICATION
     Dosage: UNK

REACTIONS (10)
  - Movement disorder [Unknown]
  - Fall [Not Recovered/Not Resolved]
  - Head injury [Unknown]
  - Musculoskeletal stiffness [Not Recovered/Not Resolved]
  - Dysgraphia [Unknown]
  - Visual impairment [Unknown]
  - Multiple sclerosis [Unknown]
  - Gait disturbance [Unknown]
  - Headache [Unknown]
  - Inappropriate schedule of drug administration [Unknown]
